FAERS Safety Report 5583253-6 (Version None)
Quarter: 2008Q1

REPORT INFORMATION
  Report Type: 
  Country: None (occurrence: None)
  Receive Date: 20080107
  Receipt Date: 20071228
  Transmission Date: 20080703
  Serious: Yes (Hospitalization, Other)
  Sender: FDA-Public Use
  Company Number: TW-ABBOTT-08P-153-0431763-00

PATIENT
  Age: 39 Year
  Sex: Female

DRUGS (8)
  1. VALPROIC ACID [Suspect]
     Indication: SCHIZOAFFECTIVE DISORDER
  2. VALPROIC ACID [Suspect]
     Dates: start: 20040701
  3. VALPROIC ACID [Suspect]
  4. CLOZAPINE [Interacting]
     Indication: DELUSION
     Dosage: TITRATED UP TO 400 MG/DAY
     Dates: start: 20040701
  5. CLOZAPINE [Interacting]
     Dates: start: 20041201
  6. LITHIUM CARBONATE [Suspect]
     Indication: SCHIZOAFFECTIVE DISORDER
     Dates: end: 20040701
  7. OLANZAPINE [Suspect]
     Indication: DELUSION
     Dates: start: 20030601, end: 20030801
  8. QUETIAPINE [Suspect]
     Indication: DELUSION
     Dates: start: 20030601, end: 20030801

REACTIONS (2)
  - DRUG INTERACTION [None]
  - PLEUROTHOTONUS [None]
